FAERS Safety Report 8880282 (Version 1)
Quarter: 2012Q4

REPORT INFORMATION
  Report Type: 
  Country: US (occurrence: US)
  Receive Date: 20121031
  Receipt Date: 20121031
  Transmission Date: 20130627
  Serious: Yes (Other)
  Sender: FDA-Public Use
  Company Number: PHHY2012US097807

PATIENT
  Age: 36 Year
  Sex: Male

DRUGS (7)
  1. CUBICIN [Suspect]
     Indication: STAPHYLOCOCCAL INFECTION
  2. VANCOMYCIN [Suspect]
     Indication: STAPHYLOCOCCAL INFECTION
  3. CEFTRIAXONE [Concomitant]
  4. CEPHALEXIN [Concomitant]
  5. DEXAMETHASONE [Concomitant]
  6. STEROIDS NOS [Concomitant]
  7. LEVOFLOXACIN [Concomitant]

REACTIONS (9)
  - Henoch-Schonlein purpura [Unknown]
  - Papule [Unknown]
  - Macule [Unknown]
  - Renal impairment [Unknown]
  - Glomerulonephritis proliferative [Unknown]
  - Cardiac valve vegetation [Unknown]
  - Tricuspid valve incompetence [Unknown]
  - Cardiac murmur [Unknown]
  - Abscess [Unknown]
